FAERS Safety Report 12238007 (Version 2)
Quarter: 2016Q2

REPORT INFORMATION
  Report Type: Spontaneous
  Country: AU (occurrence: AU)
  Receive Date: 20160405
  Receipt Date: 20160408
  Transmission Date: 20160815
  Serious: No
  Sender: FDA-Public Use
  Company Number: AU-JNJFOC-20160401978

PATIENT
  Age: 79 Year
  Sex: Male

DRUGS (1)
  1. DUROGESIC [Suspect]
     Active Substance: FENTANYL
     Indication: ARTHRITIS
     Route: 062

REACTIONS (5)
  - Dizziness [Not Recovered/Not Resolved]
  - Asthenopia [Not Recovered/Not Resolved]
  - Head discomfort [Not Recovered/Not Resolved]
  - Wrong technique in product usage process [Unknown]
  - Product quality issue [Unknown]
